FAERS Safety Report 8184573-1 (Version None)
Quarter: 2012Q1

REPORT INFORMATION
  Report Type: 
  Country: None (occurrence: None)
  Receive Date: 20120305
  Receipt Date: 20120221
  Transmission Date: 20120608
  Serious: Yes (Hospitalization, Other)
  Sender: FDA-Public Use
  Company Number: US-MERCK-1105USA01170

PATIENT
  Age: 59 Year
  Sex: Female
  Weight: 55 kg

DRUGS (32)
  1. CELEBREX [Concomitant]
     Indication: OSTEOARTHRITIS
     Route: 065
  2. BEXTRA [Concomitant]
     Indication: OSTEOARTHRITIS
     Route: 065
     Dates: end: 20050101
  3. ALENDRONATE SODIUM [Suspect]
     Route: 048
     Dates: start: 20080416, end: 20081003
  4. DURAGESIC-100 [Concomitant]
     Indication: BACK PAIN
     Route: 065
     Dates: start: 20040201, end: 20051201
  5. FLONASE [Concomitant]
     Indication: SINUS DISORDER
     Route: 065
     Dates: start: 20040316, end: 20040615
  6. OMEGA-3 MARINE TRIGLYCERIDES [Concomitant]
     Route: 065
     Dates: start: 19910101
  7. CALCIUM (UNSPECIFIED) [Concomitant]
     Route: 065
     Dates: start: 19910101
  8. TOPROL-XL [Concomitant]
     Indication: HYPERTENSION
     Route: 065
     Dates: start: 20030129, end: 20030206
  9. OXYCONTIN [Concomitant]
     Indication: BACK PAIN
     Route: 065
     Dates: start: 20010101, end: 20031201
  10. SINGULAIR [Concomitant]
     Indication: HYPERSENSITIVITY
     Route: 048
     Dates: start: 20040316
  11. POLYSACCHARIDE IRON COMPLEX [Concomitant]
     Route: 065
     Dates: start: 19910101
  12. UBIDECARENONE [Concomitant]
     Route: 065
     Dates: start: 20070101
  13. RESVERATROL [Concomitant]
     Route: 065
     Dates: start: 20090101
  14. HYDROCODONE BITARTRATE AND ACETAMINOPHEN [Concomitant]
     Indication: BACK PAIN
     Route: 065
     Dates: start: 20010101, end: 20031201
  15. ALAVERT [Concomitant]
     Route: 065
  16. ALENDRONATE SODIUM [Suspect]
     Route: 048
     Dates: start: 20081215, end: 20091117
  17. PREMPRO [Concomitant]
     Indication: MENOPAUSE
     Route: 065
     Dates: end: 20100501
  18. FLONASE [Concomitant]
     Indication: HYPERSENSITIVITY
     Route: 065
     Dates: start: 20040316, end: 20040615
  19. ASCORBIC ACID [Concomitant]
     Route: 065
     Dates: start: 19910101
  20. MAGNESIUM (UNSPECIFIED) [Concomitant]
     Route: 065
     Dates: start: 19910101
  21. VITAMIN D (UNSPECIFIED) [Concomitant]
     Route: 065
     Dates: start: 19910101
  22. LYSINE HYDROCHLORIDE [Concomitant]
     Route: 065
     Dates: start: 19910101
  23. FOSAMAX [Suspect]
     Indication: OSTEOPOROSIS
     Route: 048
     Dates: start: 19980101, end: 20100401
  24. FOSAMAX [Suspect]
     Route: 048
     Dates: start: 19991201
  25. HORMONES (UNSPECIFIED) [Concomitant]
     Indication: MENOPAUSE
     Route: 065
     Dates: start: 19900101, end: 20110501
  26. IBUPROFEN [Concomitant]
     Route: 065
  27. METHADONE HYDROCHLORIDE [Concomitant]
     Indication: BACK PAIN
     Route: 065
     Dates: start: 20051201, end: 20100301
  28. MENTAX [Concomitant]
     Indication: HYPERSENSITIVITY
     Route: 065
     Dates: start: 20040517
  29. VITAMINS (UNSPECIFIED) [Concomitant]
     Route: 065
     Dates: start: 19860101
  30. IRON (UNSPECIFIED) [Concomitant]
     Route: 065
     Dates: start: 19910101
  31. CHOLECALCIFEROL [Concomitant]
     Route: 065
     Dates: start: 19910101
  32. FOLIC ACID [Concomitant]
     Route: 065
     Dates: start: 19910101

REACTIONS (48)
  - FEMUR FRACTURE [None]
  - FATIGUE [None]
  - PULMONARY FIBROSIS [None]
  - OVARIAN CYST [None]
  - OSTEOPENIA [None]
  - PRESYNCOPE [None]
  - WEIGHT INCREASED [None]
  - INTERVERTEBRAL DISC PROTRUSION [None]
  - ANAEMIA [None]
  - RIB FRACTURE [None]
  - LUMBAR RADICULOPATHY [None]
  - FALL [None]
  - ABNORMAL DREAMS [None]
  - CHEST PAIN [None]
  - HYPERHIDROSIS [None]
  - LEFT ATRIAL DILATATION [None]
  - BLOOD GLUCOSE INCREASED [None]
  - FLANK PAIN [None]
  - BLOOD TRIGLYCERIDES INCREASED [None]
  - NAUSEA [None]
  - DIZZINESS [None]
  - UTERINE PROLAPSE [None]
  - UPPER RESPIRATORY TRACT INFECTION [None]
  - CONSTIPATION [None]
  - BLOOD URINE PRESENT [None]
  - CARDIAC FAILURE CONGESTIVE [None]
  - MITRAL VALVE PROLAPSE [None]
  - HYPERTENSION [None]
  - RESPIRATORY TRACT INFECTION [None]
  - POST LAMINECTOMY SYNDROME [None]
  - TRI-IODOTHYRONINE DECREASED [None]
  - SINUSITIS [None]
  - DENTAL CARIES [None]
  - MUSCLE SPASMS [None]
  - JOINT EFFUSION [None]
  - ARTHRITIS [None]
  - PHARYNGITIS [None]
  - NASAL SEPTUM DEVIATION [None]
  - LUNG NEOPLASM [None]
  - CATARACT [None]
  - HYPOKALAEMIA [None]
  - SPINAL OSTEOARTHRITIS [None]
  - LEUKOCYTOSIS [None]
  - BONE DEFORMITY [None]
  - BLADDER PROLAPSE [None]
  - HEPATIC CYST [None]
  - MUSCULOSKELETAL PAIN [None]
  - CARDIOVASCULAR DISORDER [None]
